FAERS Safety Report 25500347 (Version 1)
Quarter: 2025Q3

REPORT INFORMATION
  Report Type: Spontaneous
  Country: EU (occurrence: EU)
  Receive Date: 20250701
  Receipt Date: 20250701
  Transmission Date: 20251021
  Serious: Yes (Hospitalization, Other)
  Sender: AUROBINDO
  Company Number: EU-AEMPS-1701190

PATIENT
  Age: 61 Year
  Sex: Female

DRUGS (5)
  1. MEROPENEM [Suspect]
     Active Substance: MEROPENEM
     Indication: Prophylaxis
     Route: 042
     Dates: start: 20250312, end: 20250328
  2. VENETOCLAX [Suspect]
     Active Substance: VENETOCLAX
     Indication: Acute myeloid leukaemia
     Dosage: 200 MILLIGRAM, ONCE A DAY ( 200MG ONCE A DAY)
     Route: 048
     Dates: start: 20250312, end: 20250401
  3. ISAVUCONAZOLE [Suspect]
     Active Substance: ISAVUCONAZOLE
     Indication: Prophylaxis
     Dosage: 200 MILLIGRAM, ONCE A DAY  ( 2 TABLETS OF 100MG)
     Route: 048
     Dates: start: 20250130, end: 20250401
  4. XOSPATA [Concomitant]
     Active Substance: GILTERITINIB
     Indication: Acute myeloid leukaemia
     Dosage: 80 MILLIGRAM, ONCE A DAY ( 80 MG (2 TABLETS OF 40 MG) AT 4 P.M.)
     Route: 048
     Dates: start: 20250130, end: 20250428
  5. AUGMENTIN [Suspect]
     Active Substance: AMOXICILLIN\CLAVULANATE POTASSIUM
     Indication: Pyrexia
     Dosage: 1 DOSAGE FORM, 3 TIMES A DAY (1 TABLET EVERY 8 HOURS)
     Route: 048
     Dates: start: 20250325, end: 20250328

REACTIONS (1)
  - Hepatitis cholestatic [Not Recovered/Not Resolved]

NARRATIVE: CASE EVENT DATE: 20250328
